FAERS Safety Report 4398733-9 (Version None)
Quarter: 2004Q3

REPORT INFORMATION
  Report Type: 
  Country: None (occurrence: None)
  Receive Date: 20040712
  Receipt Date: 20040622
  Transmission Date: 20050211
  Serious: Yes (Life-Threatening, Hospitalization, Disabling, Other)
  Sender: FDA-Public Use
  Company Number: EWC040639719

PATIENT
  Age: 27 Year
  Sex: Female

DRUGS (6)
  1. ZYPREXA [Suspect]
     Indication: DELUSIONAL DISORDER, PERSECUTORY TYPE
     Dosage: 20 MG
  2. LITHIUM [Concomitant]
  3. DEPAKENE [Concomitant]
  4. CISORDINOL (CLOPENTHIXOL HYDROCHLORIDE) [Concomitant]
  5. PSYCHOPAX (DIAZEPAM) [Concomitant]
  6. PARKEMED (MEFENAMIC ACID) [Concomitant]

REACTIONS (2)
  - ARRHYTHMIA [None]
  - RESUSCITATION [None]
